FAERS Safety Report 15268579 (Version 1)
Quarter: 2018Q3

REPORT INFORMATION
  Report Type: Report from Study
  Country: GB (occurrence: GB)
  Receive Date: 20180812
  Receipt Date: 20180812
  Transmission Date: 20181010
  Serious: Yes (Hospitalization)
  Sender: FDA-Public Use
  Company Number: PHHY2018GB067012

PATIENT
  Sex: Male

DRUGS (1)
  1. COSENTYX [Suspect]
     Active Substance: SECUKINUMAB
     Indication: PSORIASIS
     Dosage: 300 MG, WEEKLY FROM WEEK 0, 1, 2,3 THEN QMO FROM WEEK 4 AS DIRECTED
     Route: 058
     Dates: start: 20180518

REACTIONS (2)
  - Psoriasis [Unknown]
  - Arthritis infective [Unknown]
